FAERS Safety Report 20922909 (Version 2)
Quarter: 2022Q2

REPORT INFORMATION
  Report Type: Spontaneous
  Country: GB (occurrence: GB)
  Receive Date: 20220607
  Receipt Date: 20220625
  Transmission Date: 20220721
  Serious: Yes (Death)
  Sender: FDA-Public Use
  Company Number: None

PATIENT
  Age: 58 Year
  Sex: Female
  Weight: 82 kg

DRUGS (8)
  1. OLANZAPINE [Interacting]
     Active Substance: OLANZAPINE
     Indication: Bipolar disorder
     Dosage: 15 MILLIGRAM DAILY;
     Route: 048
  2. CODEINE PHOSPHATE [Interacting]
     Active Substance: CODEINE PHOSPHATE
     Indication: Irritable bowel syndrome
     Dosage: 30 MILLIGRAM DAILY;
     Route: 048
     Dates: start: 20071028
  3. CODEINE PHOSPHATE [Interacting]
     Active Substance: CODEINE PHOSPHATE
     Indication: Diarrhoea
     Dosage: 120 MILLIGRAM DAILY;
     Route: 048
     Dates: start: 20071029, end: 20071030
  4. CODEINE PHOSPHATE [Interacting]
     Active Substance: CODEINE PHOSPHATE
     Dosage: 120 MILLIGRAM DAILY;
     Route: 048
     Dates: start: 20071028
  5. CODEINE PHOSPHATE [Interacting]
     Active Substance: CODEINE PHOSPHATE
     Dosage: 120 MILLIGRAM DAILY;
     Route: 048
     Dates: start: 20071029, end: 20071030
  6. CODEINE PHOSPHATE [Interacting]
     Active Substance: CODEINE PHOSPHATE
     Dosage: 120 MILLIGRAM DAILY;
     Route: 048
     Dates: start: 20071029, end: 20071130
  7. LEVOTHYROXINE SODIUM [Concomitant]
     Active Substance: LEVOTHYROXINE SODIUM
     Indication: Hypothyroidism
     Dosage: 50 MICROGRAM DAILY;
     Route: 048
     Dates: start: 2004
  8. VALPROIC ACID [Concomitant]
     Active Substance: VALPROIC ACID
     Indication: Bipolar disorder
     Route: 048

REACTIONS (4)
  - Respiratory depression [Fatal]
  - Sedation [Fatal]
  - Drug interaction [Fatal]
  - Somnolence [Fatal]

NARRATIVE: CASE EVENT DATE: 20071029
